FAERS Safety Report 17660329 (Version 1)
Quarter: 2020Q2

REPORT INFORMATION
  Report Type: Spontaneous
  Country: US (occurrence: US)
  Receive Date: 20200413
  Receipt Date: 20200413
  Transmission Date: 20200713
  Serious: No
  Sender: FDA-Public Use
  Company Number: US-BAYER-2020-054708

PATIENT
  Sex: Female

DRUGS (13)
  1. CLARITIN-D 12 HOUR [Suspect]
     Active Substance: LORATADINE\PSEUDOEPHEDRINE SULFATE
  2. BIOTIN [Concomitant]
     Active Substance: BIOTIN
  3. CLARITIN-D 24 HOUR [Suspect]
     Active Substance: LORATADINE\PSEUDOEPHEDRINE SULFATE
  4. PANTOPRAZOLE [Concomitant]
     Active Substance: PANTOPRAZOLE
  5. BACLOFEN. [Concomitant]
     Active Substance: BACLOFEN
  6. VITAMINS NOS [Concomitant]
     Active Substance: VITAMINS
  7. RETINOL [Concomitant]
     Active Substance: RETINOL
  8. VITAMIN D3 [Concomitant]
     Active Substance: CHOLECALCIFEROL
  9. KEYTRUDA [Concomitant]
     Active Substance: PEMBROLIZUMAB
     Indication: OESOPHAGEAL CARCINOMA
     Dosage: UNK
     Route: 042
     Dates: start: 20180710
  10. VITAMIN B 12 [VITAMIN B12 NOS] [Concomitant]
  11. TOPAMAX [Concomitant]
     Active Substance: TOPIRAMATE
  12. HYDROCODONE [Concomitant]
     Active Substance: HYDROCODONE
  13. LEVOTHYROXINE. [Concomitant]
     Active Substance: LEVOTHYROXINE

REACTIONS (3)
  - Insomnia [None]
  - Drug effective for unapproved indication [None]
  - Palpitations [None]
